FAERS Safety Report 19382362 (Version 2)
Quarter: 2021Q3

REPORT INFORMATION
  Report Type: Spontaneous
  Country: US (occurrence: US)
  Receive Date: 20210607
  Receipt Date: 20210709
  Transmission Date: 20211014
  Serious: Yes (Other)
  Sender: FDA-Public Use
  Company Number: US-BAYER-2021-148176

PATIENT
  Age: 56 Year
  Sex: Female

DRUGS (5)
  1. ESTRADIOL. [Suspect]
     Active Substance: ESTRADIOL
     Dosage: 0.075 MG
     Route: 062
  2. PROGESTERONE. [Concomitant]
     Active Substance: PROGESTERONE
  3. CYMBALTA [Concomitant]
     Active Substance: DULOXETINE HYDROCHLORIDE
  4. WELLBUTRIN [Concomitant]
     Active Substance: BUPROPION HYDROCHLORIDE
  5. KLONOPIN [Concomitant]
     Active Substance: CLONAZEPAM

REACTIONS (6)
  - Device adhesion issue [None]
  - Nerve injury [None]
  - Postmenopausal haemorrhage [None]
  - Hemianaesthesia [None]
  - Migraine [None]
  - Spinal operation [None]
